FAERS Safety Report 22855548 (Version 10)
Quarter: 2025Q4

REPORT INFORMATION
  Report Type: Report from Study
  Country: JP (occurrence: JP)
  Receive Date: 20230823
  Receipt Date: 20251118
  Transmission Date: 20260117
  Serious: Yes (Hospitalization, Other)
  Sender: ABBVIE
  Company Number: JP-TAKEDA-2022TJP071355

PATIENT
  Age: 49 Year
  Sex: Male
  Weight: 77 kg

DRUGS (5)
  1. LEUPROLIDE ACETATE [Suspect]
     Active Substance: LEUPROLIDE ACETATE
     Indication: Bulbospinal muscular atrophy congenital
     Dosage: FORM STRENGTH: 11.25 MILLIGRAM, Q3MONTHS
     Route: 058
     Dates: start: 20180718
  2. FEBUXOSTAT [Concomitant]
     Active Substance: FEBUXOSTAT
     Indication: Hyperuricaemia
     Route: 065
     Dates: start: 20250407
  3. LOSARTAN [Concomitant]
     Active Substance: LOSARTAN
     Indication: Proteinuria
     Route: 065
     Dates: start: 20250623
  4. METFORMIN HYDROCHLORIDE\VILDAGLIPTIN [Concomitant]
     Active Substance: METFORMIN HYDROCHLORIDE\VILDAGLIPTIN
     Indication: Product used for unknown indication
     Route: 065
     Dates: start: 20230724, end: 20240520
  5. VIBEGRON [Concomitant]
     Active Substance: VIBEGRON
     Indication: Pollakiuria
     Route: 065
     Dates: start: 20240722, end: 20240907

REACTIONS (10)
  - Renal cancer [Recovered/Resolved with Sequelae]
  - Hypertension [Recovering/Resolving]
  - Hepatic function abnormal [Recovered/Resolved]
  - Lipid metabolism disorder [Recovered/Resolved]
  - Diabetes mellitus [Recovering/Resolving]
  - Hypercholesterolaemia [Recovering/Resolving]
  - Proteinuria [Recovered/Resolved with Sequelae]
  - Renal impairment [Recovered/Resolved with Sequelae]
  - Ureterolithiasis [Recovered/Resolved with Sequelae]
  - Hyperuricaemia [Recovered/Resolved with Sequelae]

NARRATIVE: CASE EVENT DATE: 20211220
